FAERS Safety Report 14813146 (Version 2)
Quarter: 2018Q3

REPORT INFORMATION
  Report Type: Spontaneous
  Country: US (occurrence: US)
  Receive Date: 20180426
  Receipt Date: 20180718
  Transmission Date: 20181010
  Serious: No
  Sender: FDA-Public Use
  Company Number: US-MALLINCKRODT-T201800152

PATIENT
  Sex: Female
  Weight: 53 kg

DRUGS (1)
  1. METHYLPHENIDATE HYDROCHLORIDE. [Suspect]
     Active Substance: METHYLPHENIDATE HYDROCHLORIDE
     Indication: ATTENTION DEFICIT/HYPERACTIVITY DISORDER
     Dosage: 10 MG, 4 TIMES A DAY (15 MG EACH TIME)
     Route: 048
     Dates: start: 20171228

REACTIONS (3)
  - Diarrhoea [Recovering/Resolving]
  - Memory impairment [Unknown]
  - Pain [Recovering/Resolving]
